FAERS Safety Report 4579400-5 (Version None)
Quarter: 2005Q1

REPORT INFORMATION
  Report Type: 
  Country: None (occurrence: None)
  Receive Date: 20050209
  Receipt Date: 20050121
  Transmission Date: 20050727
  Serious: Yes (Hospitalization)
  Sender: FDA-Public Use
  Company Number: US_0409105409

PATIENT
  Age: 38 Year
  Sex: Male
  Weight: 139 kg

DRUGS (16)
  1. ZYPREXA [Suspect]
     Indication: INSOMNIA
     Dosage: 10 MG DAY
     Dates: start: 20020101, end: 20020801
  2. OLANZAPINE/FLUOXETINE CAPSULE [Concomitant]
  3. CELEXA [Concomitant]
  4. ANAFRANIL [Concomitant]
  5. LOTREL [Concomitant]
  6. PREDNISOLONE [Concomitant]
  7. HYDROCHLOROTHIAZIDE [Concomitant]
  8. VIAGRA [Concomitant]
  9. DARVOCET-N 100 [Concomitant]
  10. ASPIRIN [Concomitant]
  11. ZYRTEC [Concomitant]
  12. NASONEX [Concomitant]
  13. ALLEGRA [Concomitant]
  14. RABEPRAZOLE SODIUM [Concomitant]
  15. NITROGLYCERIN [Concomitant]
  16. PROPOXIYPHENE HCL AND ACETAMINOPHEN [Concomitant]

REACTIONS (9)
  - BLOOD CHOLESTEROL INCREASED [None]
  - BLOOD TRIGLYCERIDES INCREASED [None]
  - CHEST PAIN [None]
  - DEPRESSION [None]
  - DIABETES MELLITUS NON-INSULIN-DEPENDENT [None]
  - ERECTILE DYSFUNCTION [None]
  - HEADACHE [None]
  - MYOCARDIAL INFARCTION [None]
  - WEIGHT INCREASED [None]
